FAERS Safety Report 24107896 (Version 2)
Quarter: 2024Q3

REPORT INFORMATION
  Report Type: Report from Study
  Country: US (occurrence: US)
  Receive Date: 20240718
  Receipt Date: 20240725
  Transmission Date: 20241016
  Serious: Yes (Hospitalization, Other)
  Sender: ABBVIE
  Company Number: US-ABBVIE-5841555

PATIENT
  Age: 70 Year
  Sex: Female
  Weight: 105 kg

DRUGS (4)
  1. HUMIRA [Suspect]
     Active Substance: ADALIMUMAB
     Indication: Crohn^s disease
     Dosage: FORM STRENGTH: 80 MILLIGRAM
     Route: 058
     Dates: start: 2022
  2. HUMIRA [Suspect]
     Active Substance: ADALIMUMAB
  3. OXYBUTYNIN [Concomitant]
     Active Substance: OXYBUTYNIN\OXYBUTYNIN CHLORIDE
     Indication: Bladder disorder
  4. GASTRIN [Concomitant]
     Active Substance: GASTRIN
     Indication: Restless legs syndrome

REACTIONS (21)
  - Respiratory disorder [Not Recovered/Not Resolved]
  - Therapeutic product effect incomplete [Not Recovered/Not Resolved]
  - Crohn^s disease [Recovered/Resolved]
  - Therapeutic product effect incomplete [Not Recovered/Not Resolved]
  - Renal failure [Recovered/Resolved]
  - Feeding disorder [Recovered/Resolved]
  - Body height decreased [Not Recovered/Not Resolved]
  - Cholelithiasis [Recovered/Resolved]
  - Palpitations [Recovering/Resolving]
  - Atrial fibrillation [Unknown]
  - Atrial fibrillation [Recovering/Resolving]
  - Crohn^s disease [Unknown]
  - Gastrointestinal disorder [Not Recovered/Not Resolved]
  - Anal incontinence [Recovered/Resolved]
  - Anal incontinence [Not Recovered/Not Resolved]
  - Abdominal pain [Recovered/Resolved]
  - Loss of consciousness [Recovered/Resolved]
  - Blood pressure fluctuation [Recovering/Resolving]
  - Stress [Not Recovered/Not Resolved]
  - Malaise [Recovered/Resolved]
  - Nephrolithiasis [Unknown]

NARRATIVE: CASE EVENT DATE: 20230101
